FAERS Safety Report 8007961-2 (Version None)
Quarter: 2011Q4

REPORT INFORMATION
  Report Type: 
  Country: None (occurrence: None)
  Receive Date: 20111222
  Receipt Date: 20111222
  Transmission Date: 20120403
  Serious: No
  Sender: FDA-Public Use
  Company Number: None

PATIENT
  Age: 77 Year
  Sex: Male
  Weight: 64.8644 kg

DRUGS (1)
  1. PROGRAF [Suspect]
     Indication: RENAL TRANSPLANT
     Dosage: PROGRAF 1MG 3 MORN 3 NIGHT
     Dates: start: 20080901

REACTIONS (8)
  - DYSPNOEA [None]
  - NAUSEA [None]
  - MIDDLE INSOMNIA [None]
  - INITIAL INSOMNIA [None]
  - MALAISE [None]
  - PRODUCT SUBSTITUTION ISSUE [None]
  - PAIN [None]
  - TINNITUS [None]
